FAERS Safety Report 10220347 (Version 2)
Quarter: 2014Q3

REPORT INFORMATION
  Report Type: Spontaneous
  Country: NL (occurrence: NL)
  Receive Date: 20140606
  Receipt Date: 20140704
  Transmission Date: 20150326
  Serious: Yes (Other)
  Sender: FDA-Public Use
  Company Number: NL-009507513-1406NLD001444

PATIENT
  Age: 58 Year
  Sex: Female

DRUGS (1)
  1. FOSAMAX [Suspect]
     Active Substance: ALENDRONATE SODIUM
     Dosage: STRENGTH: 70 MG, QW
     Route: 048
     Dates: start: 20120817

REACTIONS (1)
  - Pelvic neoplasm [Not Recovered/Not Resolved]
